FAERS Safety Report 9367263 (Version 1)
Quarter: 2013Q2

REPORT INFORMATION
  Report Type: Spontaneous
  Country: BR (occurrence: BR)
  Receive Date: 20130625
  Receipt Date: 20130625
  Transmission Date: 20140414
  Serious: Yes (Other)
  Sender: FDA-Public Use
  Company Number: BR-ELI_LILLY_AND_COMPANY-BR201306004396

PATIENT
  Sex: Female
  Weight: 93 kg

DRUGS (7)
  1. HUMULIN NPH [Suspect]
     Indication: TYPE 2 DIABETES MELLITUS
     Dosage: UNK, UNKNOWN
     Route: 065
     Dates: start: 2001, end: 2009
  2. HUMULIN NPH [Suspect]
     Dosage: 30 IU, EACH MORNING
     Route: 058
     Dates: start: 201212
  3. HUMULIN NPH [Suspect]
     Dosage: 18 IU, EACH EVENING
     Route: 058
     Dates: start: 201212
  4. HUMULIN NPH [Suspect]
     Indication: TYPE 2 DIABETES MELLITUS
     Dosage: UNK, UNKNOWN
     Route: 065
     Dates: start: 2009, end: 201212
  5. DIOVAN [Concomitant]
     Indication: HYPERTENSION
     Dosage: UNK UNK, QD
     Route: 065
     Dates: start: 2009
  6. ACIDO ACETILSALICILICO [Concomitant]
     Dosage: UNK, QD
     Route: 065
     Dates: start: 2009
  7. CARVEDILOL [Concomitant]
     Indication: CARDIAC DISORDER
     Dosage: 25 MG, BID
     Route: 065
     Dates: start: 2009

REACTIONS (2)
  - Cerebrovascular accident [Unknown]
  - Injection site bruising [Recovered/Resolved]
